FAERS Safety Report 12249586 (Version 1)
Quarter: 2016Q2

REPORT INFORMATION
  Report Type: Report from Study
  Country: US (occurrence: US)
  Receive Date: 20160408
  Receipt Date: 20160408
  Transmission Date: 20160815
  Serious: No
  Sender: FDA-Public Use
  Company Number: ADR-2015-01483

PATIENT
  Age: 57 Year
  Sex: Male

DRUGS (17)
  1. ZANAFLEX [Concomitant]
     Active Substance: TIZANIDINE HYDROCHLORIDE
  2. COMPOUNDED BACLOFEN [Suspect]
     Active Substance: BACLOFEN
     Dosage: 200.12 MCG/DAY
     Route: 037
     Dates: start: 20110526
  3. BUPIVACAINE. [Suspect]
     Active Substance: BUPIVACAINE
     Dosage: 10.006 MG/DAY
     Route: 037
  4. LASIX [Concomitant]
     Active Substance: FUROSEMIDE
  5. COMPOUNDED BACLOFEN [Suspect]
     Active Substance: BACLOFEN
     Dosage: 578.98 MCG/DAY
     Route: 037
  6. DILAUDID [Suspect]
     Active Substance: HYDROMORPHONE HYDROCHLORIDE
     Dosage: 0.3497 MG/DAY
     Route: 037
     Dates: start: 20110218
  7. DILAUDID [Suspect]
     Active Substance: HYDROMORPHONE HYDROCHLORIDE
     Dosage: 0.5003 MG/DAY
     Route: 037
     Dates: start: 20110526
  8. CLONIDINE. [Suspect]
     Active Substance: CLONIDINE
     Dosage: 200.12 MCG/DAY
     Route: 037
     Dates: start: 20110218
  9. CLONIDINE. [Suspect]
     Active Substance: CLONIDINE
     Dosage: 200.12 MCG/DAY
     Route: 037
  10. DILAUDID [Concomitant]
     Active Substance: HYDROMORPHONE HYDROCHLORIDE
     Dates: start: 20110526
  11. BUPIVACAINE. [Suspect]
     Active Substance: BUPIVACAINE
     Dosage: 21.712 MG/DAY
     Route: 037
  12. COMPOUNDED BACLOFEN [Suspect]
     Active Substance: BACLOFEN
     Dosage: 69.94 MCG/DAY
     Route: 037
     Dates: start: 20110218
  13. BUPIVACAINE. [Suspect]
     Active Substance: BUPIVACAINE
     Dosage: 10.491 MG/DAY
     Route: 037
     Dates: start: 20110218
  14. NEURONTIN [Concomitant]
     Active Substance: GABAPENTIN
  15. REMERON [Concomitant]
     Active Substance: MIRTAZAPINE
  16. DILAUDID [Suspect]
     Active Substance: HYDROMORPHONE HYDROCHLORIDE
     Dosage: 1.4474 MG/DAY
     Route: 037
  17. MIRALAX [Concomitant]
     Active Substance: POLYETHYLENE GLYCOL 3350

REACTIONS (5)
  - Dizziness [Recovered/Resolved]
  - Fall [Recovered/Resolved]
  - Hypotension [Recovered/Resolved]
  - Oedema peripheral [Recovered/Resolved]
  - Medical device site pain [Recovered/Resolved]
